FAERS Safety Report 6749193-1 (Version None)
Quarter: 2010Q2

REPORT INFORMATION
  Report Type: 
  Country: None (occurrence: None)
  Receive Date: 20100601
  Receipt Date: 20100524
  Transmission Date: 20101027
  Serious: Yes (Other)
  Sender: FDA-Public Use
  Company Number: US-ASTRAZENECA-2010SE24129

PATIENT
  Age: 13932 Day
  Sex: Female
  Weight: 77.1 kg

DRUGS (4)
  1. SEROQUEL [Suspect]
     Indication: OBSESSIVE-COMPULSIVE DISORDER
     Route: 048
     Dates: start: 20030201, end: 20031201
  2. CELEXA [Concomitant]
     Indication: OBSESSIVE-COMPULSIVE DISORDER
  3. ADALAT [Concomitant]
     Indication: BLOOD CHOLESTEROL INCREASED
  4. ADALAT [Concomitant]
     Indication: HYPERLIPIDAEMIA

REACTIONS (8)
  - BLINDNESS [None]
  - BLOOD CHOLESTEROL INCREASED [None]
  - DIABETIC COMA [None]
  - DIABETIC KETOACIDOSIS [None]
  - HYPERLIPIDAEMIA [None]
  - OBESITY [None]
  - TONSILLAR DISORDER [None]
  - TYPE 2 DIABETES MELLITUS [None]
